FAERS Safety Report 4430043-3 (Version None)
Quarter: 2004Q3

REPORT INFORMATION
  Report Type: 
  Country: None (occurrence: None)
  Receive Date: 20040820
  Receipt Date: 20040809
  Transmission Date: 20050211
  Serious: Yes (Hospitalization, Other)
  Sender: FDA-Public Use
  Company Number: PHHO2004US11307

PATIENT
  Age: 29 Year
  Sex: Male
  Weight: 54 kg

DRUGS (1)
  1. DESFERAL [Suspect]
     Indication: HAEMOSIDEROSIS
     Dosage: 2000 MG QD X 5 DAYS/WEEK
     Route: 058
     Dates: start: 20040722, end: 20040804

REACTIONS (7)
  - DIARRHOEA [None]
  - DISEASE PROGRESSION [None]
  - HAEMOGLOBIN DECREASED [None]
  - MIGRAINE [None]
  - PAIN [None]
  - RED BLOOD CELL COUNT DECREASED [None]
  - SICKLE CELL ANAEMIA WITH CRISIS [None]
